FAERS Safety Report 15168354 (Version 2)
Quarter: 2018Q3

REPORT INFORMATION
  Report Type: Spontaneous
  Country: US (occurrence: US)
  Receive Date: 20180719
  Receipt Date: 20180912
  Transmission Date: 20181010
  Serious: No
  Sender: FDA-Public Use
  Company Number: US-009507513-1807USA000762

PATIENT
  Age: 13 Year
  Sex: Male

DRUGS (17)
  1. PROVENTIL [Suspect]
     Active Substance: ALBUTEROL
     Dosage: 2.5 MG, BID
  2. FEXOFENADINE HYDROCHLORIDE. [Concomitant]
     Active Substance: FEXOFENADINE HYDROCHLORIDE
     Dosage: 60 MG, BID
     Route: 048
  3. CREON (PANCRELIPASE) [Concomitant]
     Dosage: 3 CAPSULES WITH MEALS AND 2 CAPSULES WITH SNACKS DAILY
     Route: 048
  4. DORNASE ALFA. [Concomitant]
     Active Substance: DORNASE ALFA
     Dosage: 2.5 MG, QD
  5. DOXYCYCLINE. [Concomitant]
     Active Substance: DOXYCYCLINE
     Dosage: 75 MG, BID
     Route: 048
  6. SODIUM CHLORIDE. [Concomitant]
     Active Substance: SODIUM CHLORIDE
     Dosage: 4 ML, BID
  7. SOMATROPIN. [Concomitant]
     Active Substance: SOMATROPIN
     Dosage: 1.8 MG, QD
     Route: 058
  8. TOBRAMYCIN. [Concomitant]
     Active Substance: TOBRAMYCIN
     Dosage: 300 MG, BID
  9. URSODIOL. [Concomitant]
     Active Substance: URSODIOL
     Indication: LIVER FUNCTION TEST INCREASED
     Dosage: 300 MG, BID
     Route: 048
  10. NOXAFIL [Suspect]
     Active Substance: POSACONAZOLE
     Indication: INFECTION
     Dosage: 300 MG, QD (10MG/KG/DAY)
     Route: 048
  11. NOXAFIL [Suspect]
     Active Substance: POSACONAZOLE
     Dosage: 400 MG, QD (10MG/KG/DAY)
     Route: 048
  12. MOMETASONE FUROATE. [Concomitant]
     Active Substance: MOMETASONE FUROATE
     Dosage: 50 MG 2 SPRAYS TWICE DAILY
  13. VITAMINS (UNSPECIFIED) [Concomitant]
     Active Substance: VITAMINS
     Dosage: 2 DF, QPM
     Route: 048
  14. PIPERACILLIN AND TAZOBACTAM [Concomitant]
     Active Substance: PIPERACILLIN SODIUM\TAZOBACTAM SODIUM
     Dosage: (PIPERACILLIN 2 G AND TAZOBACTAM 0.8 G) I.V. EVERY 6 HOURS
     Route: 042
  15. CALCIUM CITRATE (+) VITAMIN D (UNSPECIFIED) [Concomitant]
     Active Substance: CALCIUM CITRATE\VITAMIN D
     Dosage: 325 MG?250 IU
     Route: 048
  16. LACTOBACILLUS RHAMNOSUS [Concomitant]
     Active Substance: LACTOBACILLUS RHAMNOSUS
     Dosage: 1 DF, QD
     Route: 048
  17. ESOMEPRAZOLE [Concomitant]
     Active Substance: ESOMEPRAZOLE
     Dosage: 20 MG, BID
     Route: 048

REACTIONS (2)
  - Off label use [Unknown]
  - Incorrect dose administered [Unknown]
